FAERS Safety Report 6758641-2 (Version None)
Quarter: 2010Q2

REPORT INFORMATION
  Report Type: 
  Country: None (occurrence: None)
  Receive Date: 20100603
  Receipt Date: 20100517
  Transmission Date: 20101027
  Serious: Yes (Life-Threatening, Other)
  Sender: FDA-Public Use
  Company Number: 20100218

PATIENT
  Age: 49 Year
  Sex: Male

DRUGS (1)
  1. DEHYDRATED ALCOHOL INJECTION, USP (8571-10) 99.50% [Suspect]
     Indication: CARDIAC ABLATION
     Dosage: INTRA-ARTERIAL
     Route: 013

REACTIONS (8)
  - BUNDLE BRANCH BLOCK LEFT [None]
  - BUNDLE BRANCH BLOCK RIGHT [None]
  - HYPOTENSION [None]
  - MYOCARDIAL INFARCTION [None]
  - NODAL ARRHYTHMIA [None]
  - SYNCOPE [None]
  - VENTRICULAR HYPOKINESIA [None]
  - VENTRICULAR TACHYCARDIA [None]
